FAERS Safety Report 20410767 (Version 1)
Quarter: 2022Q1

REPORT INFORMATION
  Report Type: Spontaneous
  Country: US (occurrence: None)
  Receive Date: 20220131
  Receipt Date: 20220131
  Transmission Date: 20220423
  Serious: Yes (Hospitalization)
  Sender: FDA-Public Use
  Company Number: None

PATIENT
  Age: 54 Year
  Sex: Male
  Weight: 107.1 kg

DRUGS (4)
  1. GABAPENTIN [Suspect]
     Active Substance: GABAPENTIN
     Dosage: EVERY 8 HOURS
     Route: 048
     Dates: start: 20220120, end: 20220126
  2. XTAMPZA [Concomitant]
     Active Substance: OXYCODONE
  3. METHYLPHENIDATE [Concomitant]
     Active Substance: METHYLPHENIDATE
  4. ZOLPIDEM [Concomitant]
     Active Substance: ZOLPIDEM TARTRATE

REACTIONS (3)
  - Pancreatitis [None]
  - Gastrointestinal disorder [None]
  - Visual impairment [None]

NARRATIVE: CASE EVENT DATE: 20220125
